FAERS Safety Report 14021936 (Version 1)
Quarter: 2017Q3

REPORT INFORMATION
  Report Type: Spontaneous
  Country: US (occurrence: US)
  Receive Date: 20170928
  Receipt Date: 20170928
  Transmission Date: 20171128
  Serious: Yes (Hospitalization)
  Sender: FDA-Public Use
  Company Number: None

PATIENT
  Age: 37 Year
  Sex: Male
  Weight: 85.5 kg

DRUGS (6)
  1. VERAPAMIL 360MG SR CAPSULES [Suspect]
     Active Substance: VERAPAMIL HYDROCHLORIDE
     Indication: HYPERTENSION
     Dosage: ?          QUANTITY:90 CAPSULE(S);?
     Route: 048
     Dates: start: 20170922, end: 20170927
  2. DIAMOX SEQUELS [Concomitant]
     Active Substance: ACETAZOLAMIDE
  3. VERAPAMIL [Concomitant]
     Active Substance: VERAPAMIL HYDROCHLORIDE
  4. VERAPAMIL 360MG SR CAPSULES [Suspect]
     Active Substance: VERAPAMIL HYDROCHLORIDE
     Indication: CLUSTER HEADACHE
     Dosage: ?          QUANTITY:90 CAPSULE(S);?
     Route: 048
     Dates: start: 20170922, end: 20170927
  5. ZOCOR [Concomitant]
     Active Substance: SIMVASTATIN
  6. WELLBUTRIN [Concomitant]
     Active Substance: BUPROPION HYDROCHLORIDE

REACTIONS (7)
  - Malaise [None]
  - Chest pain [None]
  - Hyperhidrosis [None]
  - Dizziness [None]
  - Nausea [None]
  - Product quality issue [None]
  - Hypertension [None]

NARRATIVE: CASE EVENT DATE: 20170927
